FAERS Safety Report 9258943 (Version 2)
Quarter: 2013Q3

REPORT INFORMATION
  Report Type: Report from Study
  Country: US (occurrence: US)
  Receive Date: 20130426
  Receipt Date: 20130904
  Transmission Date: 20140515
  Serious: Yes (Hospitalization)
  Sender: FDA-Public Use
  Company Number: US-GLAXOSMITHKLINE-B0886546A

PATIENT
  Age: 62 Year
  Sex: Female
  Weight: 88.6 kg

DRUGS (9)
  1. FLUTICASONE FUROATE [Suspect]
     Indication: CHRONIC OBSTRUCTIVE PULMONARY DISEASE
     Dates: start: 20110927, end: 20111006
  2. BROVANA [Concomitant]
     Indication: CHRONIC OBSTRUCTIVE PULMONARY DISEASE
     Dosage: 15MG PER DAY
     Route: 055
     Dates: start: 20111006
  3. NASONEX [Concomitant]
     Indication: RHINITIS ALLERGIC
     Route: 045
     Dates: start: 2007
  4. AVAPRO [Concomitant]
     Indication: HYPERTENSION
     Dosage: 300MG PER DAY
     Route: 048
     Dates: start: 2007
  5. LORAZEPAM [Concomitant]
     Indication: ANXIETY
     Dosage: 1MG PER DAY
     Route: 048
     Dates: start: 2004
  6. CITALOPRAM [Concomitant]
     Indication: DEPRESSION
     Dosage: 20MG PER DAY
     Route: 048
     Dates: start: 2006
  7. ACETAZOLAMIDE [Concomitant]
     Indication: HYPERTENSION
     Dosage: 250MG TWICE PER DAY
     Route: 048
     Dates: start: 2005
  8. SINGULAIR [Concomitant]
     Indication: RHINITIS ALLERGIC
     Route: 048
     Dates: start: 2009
  9. CRESTOR [Concomitant]
     Indication: HYPERCHOLESTEROLAEMIA
     Dosage: 10MG PER DAY
     Route: 048
     Dates: start: 20110805

REACTIONS (1)
  - Respiratory failure [Recovered/Resolved]
